FAERS Safety Report 9195831 (Version 2)
Quarter: 2013Q2

REPORT INFORMATION
  Report Type: Spontaneous
  Country: US (occurrence: None)
  Receive Date: 20120703
  Receipt Date: 20130107
  Transmission Date: 20140414
  Serious: Yes (Other)
  Sender: FDA-Public Use
  Company Number: PHEH2012US010505

PATIENT
  Age: 60 Year
  Sex: Male

DRUGS (18)
  1. GILENYA [Suspect]
     Indication: MULTIPLE SCLEROSIS
     Route: 048
     Dates: start: 20110616
  2. CODURAYL [Concomitant]
  3. CYMBALTA (DULOXETINE HYDROCHLORIDE) [Concomitant]
  4. PANTOPRAZOLE (PANTOPRAZOLE) [Concomitant]
  5. TOPAMAX (TOPIRAMATE) [Concomitant]
  6. NEURONTIN (GABAPENTIN) [Concomitant]
  7. GABAPENTIN (GABAPENTIN) [Concomitant]
  8. AROSET [Concomitant]
  9. ANTIHYPERTENSIVE DRUGS (NO INGREDIENTS/SUBSTANCES) [Concomitant]
  10. SIMVASTATIN [Concomitant]
  11. PREDNOL (METHYLPREDNISOLONE) [Concomitant]
  12. OXCARBAZEPINE [Concomitant]
  13. RAMIPRIL [Concomitant]
  14. DOXAZOSIN [Concomitant]
  15. ASTELIN (AZELASTINE HYDROCHLORIDE) [Concomitant]
  16. BACLOFEN [Concomitant]
  17. DONEPEZIL [Concomitant]
  18. DULOXETINE [Concomitant]

REACTIONS (7)
  - Eye irritation [None]
  - Lacrimation increased [None]
  - Ocular hyperaemia [None]
  - Visual impairment [None]
  - Muscular weakness [None]
  - Gait disturbance [None]
  - Vision blurred [None]
